FAERS Safety Report 8996938 (Version 1)
Quarter: 2012Q4

REPORT INFORMATION
  Report Type: Spontaneous
  Country: US (occurrence: None)
  Receive Date: 20121221
  Receipt Date: 20121221
  Transmission Date: 20130627
  Serious: Yes (Life-Threatening)
  Sender: FDA-Public Use
  Company Number: DSA_60897_2012

PATIENT
  Age: 55 Year
  Sex: Female

DRUGS (8)
  1. XENAZINE 12.5 MG (NOT SPECIFIED) [Suspect]
     Indication: HUNTINGTON^S DISEASE
     Route: 048
     Dates: start: 20121015, end: 20121105
  2. XENAZINE 12.5 MG (NOT SPECIFIED) [Suspect]
     Indication: HUNTINGTON^S DISEASE
     Dosage: (DF)
     Dates: start: 201208
  3. ABILIFY (UNKNOWN) [Concomitant]
  4. PAXIL (UNKNOWN) [Concomitant]
  5. TRAZODONE (UNKNOWN) [Concomitant]
  6. IMITREX /01044801/ (UNKNOWN) [Concomitant]
  7. LEXAPRO (UNKNOWN) [Concomitant]
  8. LUNESTA (UNKNOWN) [Concomitant]

REACTIONS (2)
  - Sleep disorder [None]
  - Delusion [None]
